FAERS Safety Report 6685241-5 (Version None)
Quarter: 2010Q2

REPORT INFORMATION
  Report Type: 
  Country: None (occurrence: None)
  Receive Date: 20100416
  Receipt Date: 20100407
  Transmission Date: 20101027
  Serious: Yes (Other)
  Sender: FDA-Public Use
  Company Number: US-AMGEN-TCS403326

PATIENT
  Sex: Female

DRUGS (1)
  1. ENBREL [Suspect]
     Indication: ANKYLOSING SPONDYLITIS
     Route: 058
     Dates: start: 20050401

REACTIONS (5)
  - ANKYLOSING SPONDYLITIS [None]
  - CONVERSION DISORDER [None]
  - HYPOAESTHESIA [None]
  - PARAESTHESIA [None]
  - UPPER RESPIRATORY TRACT INFECTION [None]
